FAERS Safety Report 18790026 (Version 2)
Quarter: 2022Q1

REPORT INFORMATION
  Report Type: Other
  Country: US (occurrence: US)
  Receive Date: 20210125
  Receipt Date: 20220123
  Transmission Date: 20220423
  Serious: Yes (Hospitalization)
  Sender: FDA-Public Use
  Company Number: US-ACORDA-ACO_167187_2020

PATIENT
  Age: 57 Year
  Sex: Male

DRUGS (1)
  1. AMPYRA [Suspect]
     Active Substance: DALFAMPRIDINE
     Indication: Multiple sclerosis
     Dosage: 10 MILLIGRAM, BID (Q 12 HRS)
     Route: 048
     Dates: start: 20180511

REACTIONS (13)
  - Adverse event [Unknown]
  - Bladder disorder [Not Recovered/Not Resolved]
  - Fall [Not Recovered/Not Resolved]
  - Therapy interrupted [Unknown]
  - Mobility decreased [Not Recovered/Not Resolved]
  - Muscular weakness [Recovering/Resolving]
  - Feeling hot [Unknown]
  - Increased tendency to bruise [Not Recovered/Not Resolved]
  - Fatigue [Unknown]
  - Extra dose administered [None]
  - Multiple sclerosis relapse [Unknown]
  - Gait disturbance [Unknown]
  - Asthenia [Unknown]

NARRATIVE: CASE EVENT DATE: 20200609
